FAERS Safety Report 4946501-9 (Version None)
Quarter: 2006Q1

REPORT INFORMATION
  Report Type: 
  Country: None (occurrence: None)
  Receive Date: 20060314
  Receipt Date: 20060301
  Transmission Date: 20060701
  Serious: Yes (Disabling, Other)
  Sender: FDA-Public Use
  Company Number: USA-2004-0013261

PATIENT
  Age: 49 Year
  Sex: Female

DRUGS (12)
  1. OXYCONTIN [Suspect]
     Indication: PAIN
     Dosage: SEE IMAGE
  2. VITAMINS (VITAMINS) [Suspect]
  3. IMITREX [Concomitant]
  4. NEXIUM [Concomitant]
  5. NAPROXEN [Concomitant]
  6. RANITIDINE [Concomitant]
  7. EVISTA [Concomitant]
  8. SYNTHROID [Concomitant]
  9. PREVACID [Concomitant]
  10. NABUMETONE [Concomitant]
  11. NORTRIPTYLINE HCL [Concomitant]
  12. HYDROXYZINE [Concomitant]

REACTIONS (46)
  - ALOPECIA [None]
  - ANXIETY [None]
  - ARTHRALGIA [None]
  - BACK PAIN [None]
  - BLOOD PRESSURE INCREASED [None]
  - BURNING SENSATION [None]
  - CONSTIPATION [None]
  - COUGH [None]
  - DELUSIONAL DISORDER, UNSPECIFIED TYPE [None]
  - DENTAL CARIES [None]
  - DEPRESSION [None]
  - DERMATITIS [None]
  - DERMATITIS CONTACT [None]
  - DIFFICULTY IN WALKING [None]
  - DRUG DEPENDENCE [None]
  - DRUG INEFFECTIVE [None]
  - DRUG TOLERANCE [None]
  - DRUG WITHDRAWAL SYNDROME [None]
  - FACET JOINT SYNDROME [None]
  - GAIT DISTURBANCE [None]
  - GASTRITIS [None]
  - GASTROOESOPHAGEAL REFLUX DISEASE [None]
  - HOT FLUSH [None]
  - HYPERACUSIS [None]
  - HYPERTENSION [None]
  - HYPOTHYROIDISM [None]
  - INADEQUATE ANALGESIA [None]
  - INTERVERTEBRAL DISC DEGENERATION [None]
  - JOINT INJURY [None]
  - LETHARGY [None]
  - LYMPHADENOPATHY [None]
  - MIGRAINE [None]
  - MUSCULOSKELETAL CHEST PAIN [None]
  - NECK PAIN [None]
  - OBSESSIVE-COMPULSIVE DISORDER [None]
  - OSTEOPOROSIS [None]
  - OVERDOSE [None]
  - PAIN [None]
  - PAIN IN EXTREMITY [None]
  - PHOTOPHOBIA [None]
  - POLLAKIURIA [None]
  - RHINITIS [None]
  - SHOULDER PAIN [None]
  - SKIN HYPOPIGMENTATION [None]
  - SUICIDE ATTEMPT [None]
  - VAGINAL INFECTION [None]
